FAERS Safety Report 10149138 (Version 1)
Quarter: 2014Q2

REPORT INFORMATION
  Report Type: Spontaneous
  Country: US (occurrence: None)
  Receive Date: 20140430
  Receipt Date: 20140430
  Transmission Date: 20141212
  Serious: Yes (Hospitalization)
  Sender: FDA-Public Use
  Company Number: None

PATIENT
  Age: 62 Year
  Sex: Male
  Weight: 95.7 kg

DRUGS (1)
  1. TAXOTERE [Suspect]

REACTIONS (7)
  - Cough [None]
  - Pyrexia [None]
  - Constipation [None]
  - Abdominal pain upper [None]
  - Vomiting [None]
  - Candida infection [None]
  - Mucosal inflammation [None]
